FAERS Safety Report 9195886 (Version 2)
Quarter: 2013Q4

REPORT INFORMATION
  Report Type: Spontaneous
  Country: US (occurrence: US)
  Receive Date: 20130328
  Receipt Date: 20131025
  Transmission Date: 20140711
  Serious: Yes (Hospitalization)
  Sender: FDA-Public Use
  Company Number: US-BAYER-2013-038038

PATIENT
  Age: 33 Year
  Sex: Female
  Weight: 68.03 kg

DRUGS (10)
  1. MIRENA [Suspect]
     Indication: CONTRACEPTION
     Dosage: 20 MCG/24HR, CONT
     Route: 015
     Dates: start: 20111027, end: 20120329
  2. MIRENA [Suspect]
     Indication: MENORRHAGIA
  3. REGLAN [Concomitant]
     Indication: GASTROOESOPHAGEAL REFLUX DISEASE
     Dosage: UNK
     Dates: start: 2011
  4. ALBUTEROL [Concomitant]
     Indication: ASTHMA
     Dosage: UNK
     Dates: start: 2011
  5. MOTRIN [Concomitant]
     Indication: ABDOMINAL PAIN
  6. PHENTERMINE [Concomitant]
  7. MACROBID [Concomitant]
  8. BACTRIM [Concomitant]
  9. PYRIDIUM [Concomitant]
  10. DIFLUCAN [Concomitant]

REACTIONS (8)
  - Device dislocation [None]
  - Injury [None]
  - Emotional distress [None]
  - Anxiety [None]
  - Scar [None]
  - Abdominal pain lower [None]
  - Dysuria [None]
  - Device dislocation [None]
